FAERS Safety Report 6991909-3 (Version None)
Quarter: 2010Q3

REPORT INFORMATION
  Report Type: 
  Country: None (occurrence: None)
  Receive Date: 20100917
  Receipt Date: 20100909
  Transmission Date: 20110219
  Serious: Yes (Hospitalization, Other)
  Sender: FDA-Public Use
  Company Number: US-ASTRAZENECA-2006UW22684

PATIENT
  Age: 18010 Day
  Sex: Female
  Weight: 98.4 kg

DRUGS (55)
  1. SEROQUEL [Suspect]
     Dosage: 100-200 MG
     Route: 048
     Dates: start: 19980202
  2. KLONOPIN [Concomitant]
  3. NEURONTIN [Concomitant]
  4. WELLBUTRIN XL [Concomitant]
     Dates: start: 20070522
  5. SYNTHROID [Concomitant]
     Route: 048
     Dates: start: 20070522
  6. PREVACID [Concomitant]
  7. MECLIZINE HYDROCHLORIDE [Concomitant]
  8. LIPITOR [Concomitant]
     Indication: HYPERLIPIDAEMIA
     Dosage: 10MG-20 MG DAILY,40MG
     Route: 048
     Dates: start: 20070522
  9. PAXIL [Concomitant]
  10. AMARYL [Concomitant]
     Dosage: 1-2 MG
     Route: 048
     Dates: start: 20070522
  11. PHENERGAN [Concomitant]
     Dates: start: 20070522
  12. ZITHROMAX [Concomitant]
  13. LAMICTAL [Concomitant]
     Dosage: 25-100MG
  14. TUMS [Concomitant]
  15. VICODIN [Concomitant]
     Dosage: 500MG/5MG 1-2 AT NIGHT
     Route: 048
  16. CYMBALTA [Concomitant]
  17. GEODON [Concomitant]
  18. BUSPAR [Concomitant]
  19. PULMICORT REPULES [Concomitant]
  20. PRILOSEC [Concomitant]
  21. COLACE [Concomitant]
  22. TRAZODONE HYDROCHLORIDE [Concomitant]
  23. CEFTIN [Concomitant]
  24. LASIX [Concomitant]
  25. SUPRAX [Concomitant]
     Route: 048
  26. BACTRIM DS [Concomitant]
     Dosage: 800-160MG
  27. ATARAX [Concomitant]
     Dates: end: 20040729
  28. THORAZINE [Concomitant]
  29. RISPERDAL [Concomitant]
     Dosage: 0.5-1.0 MG
  30. ABILIFY [Concomitant]
  31. MIRTAZAPINE [Concomitant]
  32. BENZTROPINE MESYLATE [Concomitant]
     Dosage: 0.5-1.0MG
  33. PROLIXIN [Concomitant]
  34. DOXYCYCLINE [Concomitant]
  35. AMBIEN [Concomitant]
     Dosage: 5-10 MG
  36. ROZEREM [Concomitant]
  37. BENZONATATE [Concomitant]
  38. RESTORIL [Concomitant]
     Dosage: 15-30 MG
     Dates: start: 20070522
  39. ATIVAN [Concomitant]
     Dates: start: 20070522
  40. NICOTROL [Concomitant]
  41. THIORIDAZINE HCL [Concomitant]
  42. AMOXICILLIN [Concomitant]
  43. SOMA [Concomitant]
     Dates: start: 20070522
  44. DEPAKOTE [Concomitant]
     Indication: RESTLESS LEGS SYNDROME
     Route: 048
     Dates: start: 20070522
  45. EFFEXOR [Concomitant]
     Dosage: 75-150MG
  46. PARLODEL [Concomitant]
  47. SINEMET [Concomitant]
     Dosage: 25-100 AND 50-200
  48. ALLEGRA D 24 HOUR [Concomitant]
  49. MIRAPEX [Concomitant]
     Dosage: 1-1.5MG
  50. ATROVENT [Concomitant]
     Dosage: 0.02 PERCENTAGE
  51. REQUIP [Concomitant]
  52. MELLARIL [Concomitant]
     Dates: start: 20070522
  53. LISINOPRIL [Concomitant]
     Dates: start: 20100101
  54. FOLIC ACID [Concomitant]
     Dates: start: 20100101
  55. PHENYTOIN [Concomitant]
     Dates: start: 20100101

REACTIONS (17)
  - CONJUNCTIVAL ABRASION [None]
  - DIZZINESS [None]
  - EXOSTOSIS [None]
  - FURUNCLE [None]
  - GASTROOESOPHAGEAL REFLUX DISEASE [None]
  - MELAENA [None]
  - NECK PAIN [None]
  - NEUROPATHY PERIPHERAL [None]
  - OTITIS EXTERNA [None]
  - OTITIS MEDIA [None]
  - PRESBYOPIA [None]
  - PYREXIA [None]
  - RESTLESS LEGS SYNDROME [None]
  - SCHIZOAFFECTIVE DISORDER [None]
  - TENDONITIS [None]
  - TYPE 2 DIABETES MELLITUS [None]
  - VAGINAL INFECTION [None]
